FAERS Safety Report 21168233 (Version 3)
Quarter: 2023Q2

REPORT INFORMATION
  Report Type: Report from Study
  Country: US (occurrence: US)
  Receive Date: 20220803
  Receipt Date: 20230510
  Transmission Date: 20230721
  Serious: Yes (Other)
  Sender: FDA-Public Use
  Company Number: US-SHIRE-US202017893

PATIENT
  Sex: Female

DRUGS (1)
  1. HUMAN IMMUNOGLOBULIN G\HYALURONIDASE RECOMBINANT HUMAN [Suspect]
     Active Substance: HUMAN IMMUNOGLOBULIN G\HYALURONIDASE RECOMBINANT HUMAN
     Indication: Immunodeficiency common variable
     Dosage: UNK
     Route: 065

REACTIONS (7)
  - Diaphragmatic paralysis [Unknown]
  - Sinusitis [Unknown]
  - Spinal disorder [Unknown]
  - Dermatitis contact [Recovering/Resolving]
  - Rotator cuff syndrome [Unknown]
  - Nerve block [Recovering/Resolving]
  - Back pain [Recovering/Resolving]
